FAERS Safety Report 5161197-1 (Version None)
Quarter: 2006Q4

REPORT INFORMATION
  Report Type: 
  Country: None (occurrence: None)
  Receive Date: 20061130
  Receipt Date: 20060814
  Transmission Date: 20070319
  Serious: No
  Sender: FDA-Public Use
  Company Number: US-BRISTOL-MYERS SQUIBB COMPANY-13474689

PATIENT
  Sex: Male

DRUGS (2)
  1. ERBITUX [Suspect]
     Indication: COLON CANCER METASTATIC
     Route: 042
  2. IRINOTECAN HCL [Concomitant]

REACTIONS (5)
  - DEHYDRATION [None]
  - DERMATITIS ACNEIFORM [None]
  - MUCOSAL INFLAMMATION [None]
  - RASH [None]
  - STOMATITIS [None]
